FAERS Safety Report 7897561-7 (Version None)
Quarter: 2011Q4

REPORT INFORMATION
  Report Type: 
  Country: None (occurrence: None)
  Receive Date: 20111107
  Receipt Date: 20111031
  Transmission Date: 20120403
  Serious: No
  Sender: FDA-Public Use
  Company Number: CA-ELI_LILLY_AND_COMPANY-CA201111000165

PATIENT
  Sex: Male

DRUGS (1)
  1. ADCIRCA [Suspect]
     Dosage: UNK
     Dates: start: 20111001

REACTIONS (3)
  - NIGHTMARE [None]
  - PRURITUS [None]
  - VISION BLURRED [None]
